FAERS Safety Report 8479537-4 (Version None)
Quarter: 2012Q2

REPORT INFORMATION
  Report Type: 
  Country: None (occurrence: None)
  Receive Date: 20120629
  Receipt Date: 20120622
  Transmission Date: 20120825
  Serious: Yes (Other)
  Sender: FDA-Public Use
  Company Number: US-GENZYME-FABR-1002526

PATIENT
  Sex: Female
  Weight: 68.027 kg

DRUGS (3)
  1. ACETAMINOPHEN [Concomitant]
     Indication: PREMEDICATION
     Route: 065
  2. BENADRYL [Concomitant]
     Indication: PREMEDICATION
     Route: 065
  3. FABRAZYME [Suspect]
     Indication: FABRY'S DISEASE
     Dosage: 1.03 MG/KG, Q2W
     Route: 042
     Dates: start: 20050207

REACTIONS (2)
  - ANKLE FRACTURE [None]
  - FALL [None]
